FAERS Safety Report 9237044 (Version 2)
Quarter: 2013Q2

REPORT INFORMATION
  Report Type: Spontaneous
  Country: US (occurrence: US)
  Receive Date: 20130417
  Receipt Date: 20130509
  Transmission Date: 20140414
  Serious: No
  Sender: FDA-Public Use
  Company Number: US-PFIZER INC-2013120350

PATIENT
  Age: 78 Year
  Sex: Male
  Weight: 86 kg

DRUGS (4)
  1. WARFARIN [Suspect]
     Indication: THROMBOSIS
     Dosage: UNK
     Dates: start: 20130313, end: 201303
  2. SIMVASTATIN [Concomitant]
     Dosage: UNK
  3. ENOXAPARIN [Concomitant]
     Dosage: UNK
  4. XARELTO [Concomitant]
     Dosage: UNK
     Dates: start: 201303

REACTIONS (2)
  - Pruritus [Not Recovered/Not Resolved]
  - Insomnia [Not Recovered/Not Resolved]
